FAERS Safety Report 23595206 (Version 2)
Quarter: 2024Q2

REPORT INFORMATION
  Report Type: Spontaneous
  Country: US (occurrence: US)
  Receive Date: 20240305
  Receipt Date: 20240607
  Transmission Date: 20240715
  Serious: Yes (Hospitalization, Other)
  Sender: FDA-Public Use
  Company Number: US-SA-SAC20240304000095

PATIENT
  Age: 68 Year
  Sex: Female

DRUGS (26)
  1. DUPIXENT [Suspect]
     Active Substance: DUPILUMAB
     Indication: Systemic lupus erythematosus
     Dosage: 300 MG, QOW
     Route: 058
  2. DUPIXENT [Suspect]
     Active Substance: DUPILUMAB
     Indication: Neurodermatitis
  3. ALENDRONATE SODIUM [Concomitant]
     Active Substance: ALENDRONATE SODIUM
  4. ASPIRIN [Concomitant]
     Active Substance: ASPIRIN
  5. AZATHIOPRINE [Concomitant]
     Active Substance: AZATHIOPRINE
  6. BUSPIRONE HCL [Concomitant]
     Active Substance: BUSPIRONE HYDROCHLORIDE
  7. CALTRATE WITH VITAMIN D [Concomitant]
     Active Substance: CALCIUM CARBONATE\CHOLECALCIFEROL
  8. CREON [Concomitant]
     Active Substance: PANCRELIPASE AMYLASE\PANCRELIPASE LIPASE\PANCRELIPASE PROTEASE
  9. CYANOCOBALAMIN [Concomitant]
     Active Substance: CYANOCOBALAMIN
  10. DULOXETINE HYDROCHLORIDE [Concomitant]
     Active Substance: DULOXETINE HYDROCHLORIDE
  11. GABAPENTIN [Concomitant]
     Active Substance: GABAPENTIN
  12. LOSARTAN POTASSIUM [Concomitant]
     Active Substance: LOSARTAN POTASSIUM
  13. MELATONIN [Concomitant]
     Active Substance: MELATONIN
  14. METOPROLOL SUCCINATE [Concomitant]
     Active Substance: METOPROLOL SUCCINATE
  15. NYSTATIN [Concomitant]
     Active Substance: NYSTATIN
  16. OMEPRAZOLE [Concomitant]
     Active Substance: DONEPEZIL HYDROCHLORIDE\OMEPRAZOLE\OMEPRAZOLE MAGNESIUM
  17. PLAQUENIL [Concomitant]
     Active Substance: HYDROXYCHLOROQUINE SULFATE
  18. ROPINIROLE HYDROCHLORIDE [Concomitant]
     Active Substance: ROPINIROLE HYDROCHLORIDE
  19. SENNA PLUS [SENNA ALEXANDRINA] [Concomitant]
  20. TACROLIMUS [Concomitant]
     Active Substance: TACROLIMUS
  21. VITAMIN D NOS [Concomitant]
     Active Substance: CHOLECALCIFEROL\ERGOCALCIFEROL
  22. XARELTO [Concomitant]
     Active Substance: RIVAROXABAN
  23. ZOCOR [Concomitant]
     Active Substance: SIMVASTATIN
  24. VITAMINS NOS [Concomitant]
     Active Substance: VITAMINS
  25. TYLENOL [Concomitant]
     Active Substance: ACETAMINOPHEN
  26. MEMANTINE [Concomitant]
     Active Substance: MEMANTINE

REACTIONS (10)
  - Spinal operation [Unknown]
  - Neoplasm malignant [Not Recovered/Not Resolved]
  - Back pain [Not Recovered/Not Resolved]
  - Dermatitis atopic [Not Recovered/Not Resolved]
  - Pruritus [Not Recovered/Not Resolved]
  - Skin fissures [Not Recovered/Not Resolved]
  - Skin exfoliation [Not Recovered/Not Resolved]
  - Dry skin [Not Recovered/Not Resolved]
  - Depressed mood [Unknown]
  - Product use in unapproved indication [Unknown]

NARRATIVE: CASE EVENT DATE: 20240201
